FAERS Safety Report 16128665 (Version 1)
Quarter: 2019Q1

REPORT INFORMATION
  Report Type: Spontaneous
  Country: SI (occurrence: SI)
  Receive Date: 20190328
  Receipt Date: 20190328
  Transmission Date: 20190418
  Serious: Yes (Other)
  Sender: FDA-Public Use
  Company Number: SI-MYLANLABS-2019M1028204

PATIENT
  Age: 66 Year
  Sex: Male

DRUGS (3)
  1. LEPONEX [Suspect]
     Active Substance: CLOZAPINE
     Indication: PSYCHOTIC SYMPTOM
  2. LEPONEX [Suspect]
     Active Substance: CLOZAPINE
     Indication: DEPRESSION
     Dosage: 50 MILLIGRAM, PM
  3. LEPONEX [Suspect]
     Active Substance: CLOZAPINE
     Indication: DEMENTIA WITH LEWY BODIES
     Dosage: 25 MILLIGRAM, AM

REACTIONS (3)
  - Delusion [Unknown]
  - Neutropenia [Recovering/Resolving]
  - Product use in unapproved indication [Unknown]
